FAERS Safety Report 8517934-9 (Version None)
Quarter: 2012Q3

REPORT INFORMATION
  Report Type: 
  Country: None (occurrence: None)
  Receive Date: 20120718
  Receipt Date: 20110722
  Transmission Date: 20120928
  Serious: No
  Sender: FDA-Public Use
  Company Number: US-BRISTOL-MYERS SQUIBB COMPANY-15919616

PATIENT
  Age: 83 Year
  Sex: Female
  Weight: 69 kg

DRUGS (4)
  1. COUMADIN [Suspect]
     Dosage: 1 DF = 5 MG TAB EVERY EVNG EVERY OTHER DAY; REMAINING DAYS, ONE AND A HALF TAB(5 MG TAB) EVERY EVNG
     Dates: start: 20110330
  2. AVODART [Concomitant]
     Indication: PROSTATOMEGALY
  3. RAPAFLO [Concomitant]
     Indication: PROSTATOMEGALY
  4. CRESTOR [Concomitant]
     Indication: BLOOD CHOLESTEROL INCREASED

REACTIONS (1)
  - INTERNATIONAL NORMALISED RATIO FLUCTUATION [None]
